FAERS Safety Report 8382685-0 (Version None)
Quarter: 2012Q2

REPORT INFORMATION
  Report Type: 
  Country: None (occurrence: None)
  Receive Date: 20120524
  Receipt Date: 20120522
  Transmission Date: 20120825
  Serious: Yes (Other)
  Sender: FDA-Public Use
  Company Number: US-PFIZER INC-2012124469

PATIENT
  Sex: Female
  Weight: 81.6 kg

DRUGS (4)
  1. CELEBREX [Suspect]
     Indication: ARTHRITIS
     Dosage: 200 MG, DAILY
     Dates: end: 20120401
  2. PRILOSEC [Concomitant]
     Indication: HYPERCHLORHYDRIA
     Dosage: 20 MG, DAILY, AS NEEDED
  3. PRILOSEC [Concomitant]
     Indication: ABDOMINAL DISCOMFORT
  4. SYNTHROID [Concomitant]
     Indication: THYROID DISORDER
     Dosage: 0.15 MG, DAILY

REACTIONS (3)
  - HEART RATE INCREASED [None]
  - CHEST PAIN [None]
  - HYPERTENSION [None]
